FAERS Safety Report 11093436 (Version 1)
Quarter: 2015Q2

REPORT INFORMATION
  Report Type: Report from Study
  Country: FR (occurrence: FR)
  Receive Date: 20150506
  Receipt Date: 20150506
  Transmission Date: 20150821
  Serious: Yes (Hospitalization)
  Sender: FDA-Public Use
  Company Number: FR-ROCHE-GNE248832

PATIENT
  Age: 66 Year
  Sex: Male

DRUGS (3)
  1. FLUDARABINE [Suspect]
     Active Substance: FLUDARABINE PHOSPHATE
     Indication: MANTLE CELL LYMPHOMA
     Dosage: 169 UNK, UNK
     Route: 065
     Dates: start: 20070507, end: 20070509
  2. ENDOXAN [Suspect]
     Active Substance: CYCLOPHOSPHAMIDE
     Indication: MANTLE CELL LYMPHOMA
     Dosage: 1344 UNK, UNK
     Route: 065
     Dates: start: 20070507, end: 20070509
  3. RITUXIMAB [Suspect]
     Active Substance: RITUXIMAB
     Indication: MANTLE CELL LYMPHOMA
     Dosage: 572 MG, UNK
     Route: 065
     Dates: start: 20070507, end: 20070507

REACTIONS (1)
  - Chondrocalcinosis [Recovering/Resolving]

NARRATIVE: CASE EVENT DATE: 20070528
